FAERS Safety Report 19079978 (Version 4)
Quarter: 2021Q2

REPORT INFORMATION
  Report Type: Spontaneous
  Country: JP (occurrence: JP)
  Receive Date: 20210401
  Receipt Date: 20210601
  Transmission Date: 20210717
  Serious: Yes (Death, Other)
  Sender: FDA-Public Use
  Company Number: JP-BRISTOL-MYERS SQUIBB COMPANY-BMS-2021-029115

PATIENT
  Age: 8 Decade
  Sex: Male

DRUGS (4)
  1. EMPLICITI [Suspect]
     Active Substance: ELOTUZUMAB
     Indication: PLASMA CELL MYELOMA
     Dosage: 20 MILLIGRAM, QD
     Route: 048
     Dates: end: 20201222
  2. POMALIDOMIDE [Suspect]
     Active Substance: POMALIDOMIDE
     Indication: PLASMA CELL MYELOMA
     Dosage: 4 MILLIGRAM/SQ. METER, ONE TIME PER MONTH
     Route: 041
     Dates: end: 20201222
  3. DEXAMETHASONE. [Concomitant]
     Active Substance: DEXAMETHASONE
     Indication: PLASMA CELL MYELOMA
     Dosage: UNK
     Route: 065
  4. EMPLICITI [Suspect]
     Active Substance: ELOTUZUMAB
     Dates: end: 20201222

REACTIONS (5)
  - Malignant neoplasm progression [Fatal]
  - Intentional product use issue [Unknown]
  - Off label use [Unknown]
  - Pancytopenia [Fatal]
  - Pneumonia [Fatal]

NARRATIVE: CASE EVENT DATE: 20201222
